FAERS Safety Report 24379155 (Version 2)
Quarter: 2024Q4

REPORT INFORMATION
  Report Type: Other
  Country: US (occurrence: US)
  Receive Date: 20240930
  Receipt Date: 20241110
  Transmission Date: 20250114
  Serious: Yes (Other)
  Sender: AVEVA DRUG DELIVERY SYSTEMS INC.
  Company Number: US-AVEVA-000750

PATIENT

DRUGS (1)
  1. BUPRENORPHINE\NALOXONE [Suspect]
     Active Substance: BUPRENORPHINE\NALOXONE
     Indication: Drug use disorder
     Dosage: UNK
     Route: 060

REACTIONS (21)
  - Overdose [Unknown]
  - Intentional self-injury [Unknown]
  - Suicidal ideation [Unknown]
  - Chest pain [Unknown]
  - Constipation [Unknown]
  - Nausea [Unknown]
  - Vomiting [Unknown]
  - Pain [Unknown]
  - Multiple allergies [Unknown]
  - Decreased appetite [Unknown]
  - Arthralgia [Unknown]
  - Muscle spasms [Unknown]
  - Headache [Unknown]
  - Anxiety [Unknown]
  - Depression [Unknown]
  - Drug withdrawal syndrome [Unknown]
  - Insomnia [Unknown]
  - Irritability [Unknown]
  - Nervousness [Unknown]
  - Cough [Unknown]
  - Pruritus [Unknown]
